FAERS Safety Report 6481353-X (Version None)
Quarter: 2009Q4

REPORT INFORMATION
  Report Type: 
  Country: None (occurrence: None)
  Receive Date: 20091208
  Receipt Date: 20091201
  Transmission Date: 20100525
  Serious: Yes (Hospitalization)
  Sender: FDA-Public Use
  Company Number: B0612511A

PATIENT
  Sex: Female

DRUGS (1)
  1. LANOXIN [Suspect]
     Dosage: 125MG PER DAY
     Route: 048
     Dates: start: 20090101, end: 20091123

REACTIONS (1)
  - CARDIOACTIVE DRUG LEVEL INCREASED [None]
